FAERS Safety Report 17204353 (Version 6)
Quarter: 2022Q2

REPORT INFORMATION
  Report Type: Report from Study
  Country: JP (occurrence: None)
  Receive Date: 20191226
  Receipt Date: 20220527
  Transmission Date: 20220721
  Serious: Yes (Hospitalization)
  Sender: FDA-Public Use
  Company Number: JP-EISAI MEDICAL RESEARCH-EC-2019-067696

PATIENT
  Age: 86 Year
  Sex: Male
  Weight: 60 kg

DRUGS (24)
  1. LENVATINIB [Suspect]
     Active Substance: LENVATINIB
     Indication: Renal cell carcinoma
     Route: 048
     Dates: start: 20180912, end: 20181113
  2. LENVATINIB [Suspect]
     Active Substance: LENVATINIB
     Route: 048
     Dates: start: 20181114, end: 20190521
  3. LENVATINIB [Suspect]
     Active Substance: LENVATINIB
     Route: 048
     Dates: start: 20190522, end: 20191126
  4. LENVATINIB [Suspect]
     Active Substance: LENVATINIB
     Route: 048
     Dates: start: 20191127, end: 20191210
  5. LENVATINIB [Suspect]
     Active Substance: LENVATINIB
     Route: 048
     Dates: start: 20200108, end: 20200207
  6. LENVATINIB [Suspect]
     Active Substance: LENVATINIB
     Route: 048
     Dates: start: 20200226, end: 20200409
  7. LENVATINIB [Suspect]
     Active Substance: LENVATINIB
     Route: 048
     Dates: start: 20200422, end: 20201101
  8. LENVATINIB [Suspect]
     Active Substance: LENVATINIB
     Route: 048
     Dates: start: 20201109
  9. EVEROLIMUS [Suspect]
     Active Substance: EVEROLIMUS
     Indication: Renal cell carcinoma
     Route: 048
     Dates: start: 20180912, end: 20191210
  10. EVEROLIMUS [Suspect]
     Active Substance: EVEROLIMUS
     Route: 048
     Dates: start: 20200108, end: 20200207
  11. EVEROLIMUS [Suspect]
     Active Substance: EVEROLIMUS
     Route: 048
     Dates: start: 20200226, end: 20200409
  12. EVEROLIMUS [Suspect]
     Active Substance: EVEROLIMUS
     Route: 048
     Dates: start: 20200422, end: 20201101
  13. EVEROLIMUS [Suspect]
     Active Substance: EVEROLIMUS
     Route: 048
     Dates: start: 20201109
  14. AZOSEMIDE [Concomitant]
     Active Substance: AZOSEMIDE
     Indication: Oedema
     Route: 048
     Dates: start: 20191220
  15. AZOSEMIDE [Concomitant]
     Active Substance: AZOSEMIDE
     Route: 048
     Dates: start: 20200130
  16. DIOVAN [Concomitant]
     Active Substance: VALSARTAN
     Indication: Hypertension
     Route: 048
     Dates: start: 2017
  17. LEVOTHYROXINE SODIUM [Concomitant]
     Active Substance: LEVOTHYROXINE SODIUM
     Indication: Hypothyroidism
     Route: 048
     Dates: start: 20190815
  18. LEVOTHYROXINE SODIUM [Concomitant]
     Active Substance: LEVOTHYROXINE SODIUM
     Route: 048
     Dates: start: 20200626
  19. CILNIDIPINE [Concomitant]
     Active Substance: CILNIDIPINE
     Indication: Hypertension
     Route: 048
     Dates: start: 2017
  20. FERROUS SULFATE [Concomitant]
     Active Substance: FERROUS SULFATE
     Indication: Anaemia
     Route: 048
     Dates: start: 20190724, end: 20191126
  21. FERROUS SULFATE [Concomitant]
     Active Substance: FERROUS SULFATE
     Route: 048
     Dates: start: 20191127
  22. FERROUS SULFATE [Concomitant]
     Active Substance: FERROUS SULFATE
     Route: 048
     Dates: start: 20200108
  23. SODIUM GUALENATE MONOHYDRATE [Concomitant]
     Active Substance: SODIUM GUALENATE MONOHYDRATE
     Indication: Prophylaxis
     Dates: start: 20180912
  24. UREA [Concomitant]
     Active Substance: UREA
     Indication: Palmar-plantar erythrodysaesthesia syndrome
     Dosage: DOSE UNKNOWN, AS NEEDED
     Route: 061
     Dates: start: 20181024

REACTIONS (4)
  - Anaemia [Recovered/Resolved]
  - Pneumonia [Recovered/Resolved]
  - Campylobacter gastroenteritis [Recovered/Resolved]
  - Pericardial effusion [Recovered/Resolved]

NARRATIVE: CASE EVENT DATE: 20190320
